FAERS Safety Report 7971941-3 (Version None)
Quarter: 2011Q4

REPORT INFORMATION
  Report Type: 
  Country: None (occurrence: None)
  Receive Date: 20111212
  Receipt Date: 20111206
  Transmission Date: 20120403
  Serious: Yes (Hospitalization)
  Sender: FDA-Public Use
  Company Number: US-BRISTOL-MYERS SQUIBB COMPANY-16273401

PATIENT
  Age: 63 Year
  Sex: Female

DRUGS (4)
  1. LISINOPRIL [Concomitant]
     Dates: start: 20070905
  2. BELATACEPT [Suspect]
     Indication: RENAL TRANSPLANT
     Route: 042
     Dates: start: 20070224
  3. MYCOPHENOLATE MOFETIL (CELLCEPT) [Suspect]
     Dates: start: 20070224
  4. PREDNISONE [Suspect]
     Indication: RENAL TRANSPLANT
     Dates: start: 20070905

REACTIONS (1)
  - PULMONARY OEDEMA [None]
